FAERS Safety Report 4663722-3 (Version None)
Quarter: 2005Q2

REPORT INFORMATION
  Report Type: 
  Country: None (occurrence: None)
  Receive Date: 20050516
  Receipt Date: 20050506
  Transmission Date: 20051028
  Serious: Yes (Hospitalization, Other)
  Sender: FDA-Public Use
  Company Number: 2005071172

PATIENT
  Age: 78 Year
  Sex: Female

DRUGS (13)
  1. XALATAN [Suspect]
     Indication: GLAUCOMA
     Dosage: 2 DROP (1 IN 1 D), OPHTHALMIC
     Route: 047
  2. ZOCOR [Suspect]
     Indication: BLOOD CHOLESTEROL INCREASED
  3. METOPROLOL TARTRATE [Concomitant]
  4. GLIPIZIDE [Concomitant]
  5. RAMIPRIL [Concomitant]
  6. BETAXOLOL HYDROCHLORIDE (BETAXOLOL HYDROCHLORIDE) [Concomitant]
  7. BRIMONIDINE TARTRATE [Concomitant]
  8. GLUCOSAMINE (GLUCOSAMINE) [Concomitant]
  9. ASPIRIN [Concomitant]
  10. VITAMINS (VITAMINS) [Concomitant]
  11. IRON (IRON) [Concomitant]
  12. GINKGO BILOBA (GINKGO BILOBA) [Concomitant]
  13. DIAZEPAM [Concomitant]

REACTIONS (17)
  - ASTHENIA [None]
  - BLOOD CHOLESTEROL INCREASED [None]
  - BLOOD GLUCOSE INCREASED [None]
  - BODY HEIGHT ABNORMAL [None]
  - BODY HEIGHT DECREASED [None]
  - CATARACT [None]
  - CHOKING [None]
  - CORONARY ARTERY OCCLUSION [None]
  - DIABETES MELLITUS INADEQUATE CONTROL [None]
  - DRY MOUTH [None]
  - DYSPNOEA [None]
  - LIMB DISCOMFORT [None]
  - OVERWEIGHT [None]
  - RETINAL DETACHMENT [None]
  - STAPHYLOCOCCAL INFECTION [None]
  - TREATMENT NONCOMPLIANCE [None]
  - VISUAL ACUITY REDUCED [None]
